FAERS Safety Report 4375134-0 (Version None)
Quarter: 2004Q2

REPORT INFORMATION
  Report Type: 
  Country: None (occurrence: None)
  Receive Date: 20040603
  Receipt Date: 20040518
  Transmission Date: 20050107
  Serious: Yes (Hospitalization)
  Sender: FDA-Public Use
  Company Number: JP-JNJFOX-20040203199

PATIENT
  Age: 62 Year
  Sex: Female
  Weight: 44 kg

DRUGS (10)
  1. REMICADE [Suspect]
     Indication: RHEUMATOID ARTHRITIS
     Dosage: 3 MG/KG, 1 IN 1 AS NECESSARY, INTRAVENOUS DRIP
     Route: 041
     Dates: start: 20031104, end: 20031104
  2. REMICADE [Suspect]
     Indication: RHEUMATOID ARTHRITIS
     Dosage: 3 MG/KG, 1 IN 1 AS NECESSARY, INTRAVENOUS DRIP
     Route: 041
     Dates: start: 20031118, end: 20031118
  3. REMICADE [Suspect]
     Indication: RHEUMATOID ARTHRITIS
     Dosage: 3 MG/KG, 1 IN 1 AS NECESSARY, INTRAVENOUS DRIP
     Route: 041
     Dates: start: 20031216, end: 20031216
  4. REMICADE [Suspect]
     Indication: RHEUMATOID ARTHRITIS
     Dosage: 3 MG/KG, 1 IN 1 AS NECESSARY, INTRAVENOUS DRIP
     Route: 041
     Dates: start: 20040323, end: 20040323
  5. REMICADE [Suspect]
     Indication: RHEUMATOID ARTHRITIS
     Dosage: 3 MG/KG, 1 IN 1 AS NECESSARY, INTRAVENOUS DRIP
     Route: 041
     Dates: start: 20040518, end: 20040518
  6. METHOTREXATE [Concomitant]
  7. PREDONINE (TABLETS) PREDNISOLONE [Concomitant]
  8. RIDUARA (AURANOFIN) TABLETS [Concomitant]
  9. MOBIC [Concomitant]
  10. FOLIAMIN (FOLIC ACID) [Concomitant]

REACTIONS (13)
  - BLOOD ALKALINE PHOSPHATASE INCREASED [None]
  - BRONCHIECTASIS [None]
  - CONDITION AGGRAVATED [None]
  - HAEMOPHILUS INFECTION [None]
  - HAEMOPTYSIS [None]
  - LYMPHOCYTE COUNT DECREASED [None]
  - NEUTROPHIL COUNT INCREASED [None]
  - PLATELET COUNT INCREASED [None]
  - PYREXIA [None]
  - SPUTUM CULTURE POSITIVE [None]
  - STAPHYLOCOCCAL INFECTION [None]
  - STREPTOCOCCAL INFECTION [None]
  - WHITE BLOOD CELL COUNT INCREASED [None]
